FAERS Safety Report 9350108 (Version 2)
Quarter: 2013Q3

REPORT INFORMATION
  Report Type: Spontaneous
  Country: US (occurrence: US)
  Receive Date: 20130616
  Receipt Date: 20130717
  Transmission Date: 20140515
  Serious: No
  Sender: FDA-Public Use
  Company Number: US-009507513-1306USA006184

PATIENT
  Sex: Male

DRUGS (4)
  1. PROVENTIL [Suspect]
     Route: 055
  2. ADVAIR [Suspect]
  3. FLONASE [Suspect]
  4. IPRATROPIUM BROMIDE [Suspect]

REACTIONS (1)
  - Dyspnoea [Unknown]
